FAERS Safety Report 23715821 (Version 1)
Quarter: 2024Q2

REPORT INFORMATION
  Report Type: Spontaneous
  Country: GB (occurrence: GB)
  Receive Date: 20240408
  Receipt Date: 20240408
  Transmission Date: 20240716
  Serious: No
  Sender: FDA-Public Use
  Company Number: None

PATIENT
  Age: 47 Year
  Sex: Female
  Weight: 83 kg

DRUGS (8)
  1. IBUPROFEN [Suspect]
     Active Substance: IBUPROFEN
     Indication: Ill-defined disorder
     Dosage: UNK
     Route: 065
     Dates: start: 20231214
  2. FLUTICASONE FUROATE [Concomitant]
     Active Substance: FLUTICASONE FUROATE
     Indication: Ill-defined disorder
     Dosage: UNK, OD (USE ONCE DAILY)
     Route: 065
     Dates: start: 20220920
  3. ERYTHROMYCIN [Concomitant]
     Active Substance: ERYTHROMYCIN
     Indication: Ill-defined disorder
     Dosage: UNK, QID (TAKE TWO 4 TIMES/DAY)
     Route: 065
     Dates: start: 20231203, end: 20231210
  4. DYDROGESTERONE\ESTRADIOL [Concomitant]
     Active Substance: DYDROGESTERONE\ESTRADIOL
     Indication: Ill-defined disorder
     Dosage: UNK, QD (TAKE ONE DAILY)
     Route: 065
     Dates: start: 20230909, end: 20231130
  5. FEXOFENADINE [Concomitant]
     Active Substance: FEXOFENADINE HYDROCHLORIDE
     Indication: Ill-defined disorder
     Dosage: UNK, QD (TAKE ONE DAILY)
     Route: 065
     Dates: start: 20220920
  6. ESTRADIOL [Concomitant]
     Active Substance: ESTRADIOL
     Indication: Ill-defined disorder
     Dosage: UNK, OD (APPLY THE CONTENTS OF ONE SACHET ONCE DAILY TO ...)
     Route: 065
     Dates: start: 20231130
  7. CROMOLYN SODIUM [Concomitant]
     Active Substance: CROMOLYN SODIUM
     Indication: Ill-defined disorder
     Dosage: UNK, QID (TAKE TWO 4 TIMES/DAY)
     Route: 065
     Dates: start: 20220920
  8. UTROGESTAN [Concomitant]
     Active Substance: PROGESTERONE
     Indication: Ill-defined disorder
     Dosage: UNK, HS (TWO CAPSULES TO BE TAKEN DAILY AT BEDTIME FOR T...)
     Route: 065
     Dates: start: 20231130

REACTIONS (1)
  - Vomiting [Recovered/Resolved]

NARRATIVE: CASE EVENT DATE: 20231214
